FAERS Safety Report 4363877-4 (Version None)
Quarter: 2004Q2

REPORT INFORMATION
  Report Type: 
  Country: None (occurrence: None)
  Receive Date: 20040519
  Receipt Date: 20040507
  Transmission Date: 20050107
  Serious: Yes (Hospitalization)
  Sender: FDA-Public Use
  Company Number: 2004AP02563

PATIENT
  Age: 80 Year
  Sex: Female

DRUGS (5)
  1. ATACAND HCT [Suspect]
     Dosage: 16 MG + 12.5 MG DAILY
     Dates: start: 20030912, end: 20030920
  2. LOSEC [Suspect]
     Indication: OESOPHAGEAL DISORDER
     Dosage: 20 MG DAILY PO
     Route: 048
  3. NIFEDIPINE [Concomitant]
  4. ATENOLOL [Concomitant]
  5. SLOW-K [Concomitant]

REACTIONS (3)
  - GAIT DISTURBANCE [None]
  - HYPONATRAEMIA [None]
  - SYNCOPE [None]
